FAERS Safety Report 14078554 (Version 17)
Quarter: 2023Q4

REPORT INFORMATION
  Report Type: Report from Study
  Country: CA (occurrence: CA)
  Receive Date: 20171012
  Receipt Date: 20231129
  Transmission Date: 20240110
  Serious: Yes (Other)
  Sender: FDA-Public Use
  Company Number: PHHY2016CA168671

PATIENT
  Age: 82 Year
  Sex: Male

DRUGS (3)
  1. SANDOSTATIN LAR DEPOT [Suspect]
     Active Substance: OCTREOTIDE ACETATE
     Indication: Carcinoid tumour
     Dosage: 30 MG, Q4W (EVERY 4 WEEKS)
     Route: 030
     Dates: start: 20161130
  2. SANDOSTATIN LAR DEPOT [Suspect]
     Active Substance: OCTREOTIDE ACETATE
     Dosage: 30 MG, QMO
     Route: 030
     Dates: start: 20190322
  3. SANDOSTATIN LAR DEPOT [Suspect]
     Active Substance: OCTREOTIDE ACETATE

REACTIONS (15)
  - Deafness [Recovering/Resolving]
  - Hepatic neoplasm [Unknown]
  - Ingrowing nail [Unknown]
  - Erythema [Unknown]
  - Hypoaesthesia [Unknown]
  - Paraesthesia [Unknown]
  - Peripheral swelling [Unknown]
  - Joint swelling [Unknown]
  - Weight decreased [Unknown]
  - Oedema [Unknown]
  - Abnormal faeces [Recovering/Resolving]
  - Hypertension [Unknown]
  - Blood pressure systolic increased [Unknown]
  - Diarrhoea [Recovering/Resolving]
  - Blood cholesterol increased [Unknown]

NARRATIVE: CASE EVENT DATE: 20161201
